FAERS Safety Report 7592277-9 (Version None)
Quarter: 2011Q3

REPORT INFORMATION
  Report Type: 
  Country: None (occurrence: None)
  Receive Date: 20110706
  Receipt Date: 20110627
  Transmission Date: 20111222
  Serious: Yes (Other)
  Sender: FDA-Public Use
  Company Number: DE-JNJFOC-20110612535

PATIENT
  Age: 56 Year
  Sex: Male

DRUGS (1)
  1. GOLIMUMAB [Suspect]
     Indication: PSORIATIC ARTHROPATHY
     Route: 058
     Dates: start: 20110324, end: 20110526

REACTIONS (1)
  - GAMMA-GLUTAMYLTRANSFERASE INCREASED [None]
